FAERS Safety Report 9703962 (Version 2)
Quarter: 2013Q4

REPORT INFORMATION
  Report Type: Report from Study
  Country: DE (occurrence: DE)
  Receive Date: 20131122
  Receipt Date: 20131122
  Transmission Date: 20140711
  Serious: No
  Sender: FDA-Public Use
  Company Number: PHHY2013DE092926

PATIENT
  Sex: 0

DRUGS (4)
  1. SOM230 [Suspect]
     Indication: PITUITARY-DEPENDENT CUSHING^S SYNDROME
  2. IBANDRONATE SODIUM [Concomitant]
  3. LEKOVIT CA [Concomitant]
  4. DRUGS FOR TREATMENT OF HYPERCALCEMIA [Concomitant]
     Route: 048

REACTIONS (1)
  - Hyperglycaemia [Unknown]
